FAERS Safety Report 9628779 (Version 2)
Quarter: 2014Q2

REPORT INFORMATION
  Report Type: Report from Study
  Country: FR (occurrence: FR)
  Receive Date: 20131017
  Receipt Date: 20140529
  Transmission Date: 20141212
  Serious: Yes (Other)
  Sender: FDA-Public Use
  Company Number: FR-ASTELLAS-2013EU008852

PATIENT
  Age: 1 Year
  Sex: Female

DRUGS (3)
  1. TACROLIMUS [Suspect]
     Indication: PROPHYLAXIS AGAINST TRANSPLANT REJECTION
     Route: 048
     Dates: start: 20130704, end: 20130805
  2. TACROLIMUS [Suspect]
     Dosage: 0.4 MG, TWICE DAILY
     Route: 048
     Dates: start: 20130706
  3. SIMULECT [Concomitant]
     Indication: PRODUCT USED FOR UNKNOWN INDICATION
     Route: 065
     Dates: start: 20130704

REACTIONS (2)
  - Cardiotoxicity [Recovering/Resolving]
  - Transplant rejection [Recovered/Resolved]
